FAERS Safety Report 7903135-1 (Version None)
Quarter: 2011Q4

REPORT INFORMATION
  Report Type: 
  Country: None (occurrence: None)
  Receive Date: 20111109
  Receipt Date: 20111028
  Transmission Date: 20120403
  Serious: Yes (Other)
  Sender: FDA-Public Use
  Company Number: US-BRISTOL-MYERS SQUIBB COMPANY-16204653

PATIENT
  Age: 85 Year
  Sex: Male
  Weight: 71 kg

DRUGS (3)
  1. ASPIRIN [Concomitant]
  2. PLAVIX [Concomitant]
  3. COUMADIN [Suspect]
     Indication: CARDIAC MURMUR
     Route: 048
     Dates: end: 20110601

REACTIONS (2)
  - PAIN IN EXTREMITY [None]
  - CYANOSIS [None]
